FAERS Safety Report 11771534 (Version 1)
Quarter: 2015Q4

REPORT INFORMATION
  Report Type: Spontaneous
  Country: US (occurrence: None)
  Receive Date: 20151123
  Receipt Date: 20151123
  Transmission Date: 20160304
  Serious: Yes (Hospitalization, Disabling, Other)
  Sender: FDA-Public Use
  Company Number: None

PATIENT
  Age: 32 Year
  Sex: Male
  Weight: 124.74 kg

DRUGS (3)
  1. NORCO [Suspect]
     Active Substance: ACETAMINOPHEN\HYDROCODONE BITARTRATE
     Indication: PAIN MANAGEMENT
     Dosage: 1 PILL (10/325 MG) FOUR TIMES DAILY TAKEN BY MOUTH
     Route: 048
     Dates: start: 20151105, end: 20151122
  2. ADVIL [Concomitant]
     Active Substance: IBUPROFEN
  3. TUMS [Concomitant]
     Active Substance: CALCIUM CARBONATE

REACTIONS (12)
  - Palpitations [None]
  - Nausea [None]
  - Dysuria [None]
  - Malaise [None]
  - Drug effect decreased [None]
  - Dyspnoea [None]
  - Vision blurred [None]
  - Vertigo [None]
  - Vomiting [None]
  - Hepatic enzyme increased [None]
  - Anxiety [None]
  - Product substitution issue [None]

NARRATIVE: CASE EVENT DATE: 20151121
